FAERS Safety Report 8350062-4 (Version None)
Quarter: 2012Q2

REPORT INFORMATION
  Report Type: 
  Country: None (occurrence: None)
  Receive Date: 20120510
  Receipt Date: 20120507
  Transmission Date: 20120825
  Serious: Yes (Hospitalization, Other)
  Sender: FDA-Public Use
  Company Number: US-BAYER-201020778NA

PATIENT
  Age: 20 Year
  Sex: Female
  Weight: 86 kg

DRUGS (4)
  1. YAZ [Suspect]
     Indication: PREMENSTRUAL SYNDROME
     Dosage: UNK UNK, UNK
     Route: 048
     Dates: start: 20070401, end: 20070415
  2. CYMBALTA [Concomitant]
     Dosage: 30 MG, UNK
  3. NAPROXEN (ALEVE) [Concomitant]
  4. NAPROXEN [Concomitant]

REACTIONS (4)
  - DYSPNOEA [None]
  - PULMONARY EMBOLISM [None]
  - CHEST PAIN [None]
  - MENTAL DISORDER [None]
